FAERS Safety Report 14325406 (Version 1)
Quarter: 2017Q4

REPORT INFORMATION
  Report Type: Report from Study
  Country: CN (occurrence: CN)
  Receive Date: 20171226
  Receipt Date: 20171226
  Transmission Date: 20180321
  Serious: Yes (Other)
  Sender: FDA-Public Use
  Company Number: CN-MYLANLABS-2017M1081651

PATIENT
  Age: 28 Year
  Sex: Female

DRUGS (6)
  1. CARBOPLATIN. [Suspect]
     Active Substance: CARBOPLATIN
     Indication: ADJUVANT THERAPY
     Dosage: AUC=2. DAY 1 WEEKLY
     Route: 065
  2. CARBOPLATIN. [Suspect]
     Active Substance: CARBOPLATIN
     Indication: INTRADUCTAL PROLIFERATIVE BREAST LESION
  3. PACLITAXEL. [Suspect]
     Active Substance: PACLITAXEL
     Indication: INTRADUCTAL PROLIFERATIVE BREAST LESION
     Dosage: 80 MG/M2 ON DAY 1, 8 AND 15; CYCLED EVERY 21 DAYS
     Route: 065
  4. EPIRUBICIN [Suspect]
     Active Substance: EPIRUBICIN
     Indication: NEOADJUVANT THERAPY
     Dosage: 80 MG/M2 ON DAY 1; CYCLED EVERY 21 DAYS.
     Route: 065
  5. EPIRUBICIN [Suspect]
     Active Substance: EPIRUBICIN
     Indication: INTRADUCTAL PROLIFERATIVE BREAST LESION
  6. PACLITAXEL. [Suspect]
     Active Substance: PACLITAXEL
     Indication: NEOADJUVANT THERAPY
     Dosage: 80 MG/M2 ON DAY 1, WEEKLY AS ADJUVANT CHEMOTHERAPY
     Route: 050

REACTIONS (7)
  - Nausea [Unknown]
  - Gastrooesophageal reflux disease [Unknown]
  - Exposure during pregnancy [Recovered/Resolved]
  - Alopecia [Unknown]
  - Premature labour [Unknown]
  - Constipation [Unknown]
  - Bone marrow failure [Unknown]
